FAERS Safety Report 5298910-9 (Version None)
Quarter: 2007Q2

REPORT INFORMATION
  Report Type: 
  Country: None (occurrence: None)
  Receive Date: 20070417
  Receipt Date: 20070404
  Transmission Date: 20071010
  Serious: Yes (Other)
  Sender: FDA-Public Use
  Company Number: PHEH2007US04087

PATIENT
  Age: 80 Year

DRUGS (1)
  1. ZELNORM [Suspect]
     Indication: CONSTIPATION
     Dosage: UNK, TID
     Route: 048
     Dates: start: 20020101, end: 20070404

REACTIONS (3)
  - DIZZINESS [None]
  - FLUID RETENTION [None]
  - RENAL FAILURE [None]
